FAERS Safety Report 25748692 (Version 3)
Quarter: 2025Q3

REPORT INFORMATION
  Report Type: Report from Study
  Country: US (occurrence: US)
  Receive Date: 20250902
  Receipt Date: 20250922
  Transmission Date: 20251020
  Serious: Yes (Hospitalization, Other)
  Sender: ACADIA PHARMACEUTICALS
  Company Number: US-ACADIA PHARMACEUTICALS INC.-ACA-2025-PIM-009647

PATIENT
  Sex: Female

DRUGS (20)
  1. NUPLAZID [Suspect]
     Active Substance: PIMAVANSERIN TARTRATE
     Indication: Parkinson^s disease psychosis
     Dosage: 10 MILLIGRAM, QD
     Route: 048
  2. NUPLAZID [Suspect]
     Active Substance: PIMAVANSERIN TARTRATE
     Dosage: 10 MILLIGRAM, QD
     Route: 048
  3. NUPLAZID [Suspect]
     Active Substance: PIMAVANSERIN TARTRATE
     Indication: Parkinson^s disease psychosis
     Dosage: 34 MILLIGRAM, QD
     Route: 048
  4. ZEPOSIA [Concomitant]
     Active Substance: OZANIMOD HYDROCHLORIDE
  5. ELIQUIS [Concomitant]
     Active Substance: APIXABAN
  6. PLAVIX [Concomitant]
     Active Substance: CLOPIDOGREL BISULFATE
  7. DUPIXENT [Concomitant]
     Active Substance: DUPILUMAB
  8. MOMETASONE FUROATE [Concomitant]
     Active Substance: MOMETASONE FUROATE
  9. TRELEGY ELLIPTA [Concomitant]
     Active Substance: FLUTICASONE FUROATE\UMECLIDINIUM BROMIDE\VILANTEROL TRIFENATATE
  10. MIRTAZAPINE [Concomitant]
     Active Substance: MIRTAZAPINE
  11. ROSUVASTATIN [Concomitant]
     Active Substance: ROSUVASTATIN
  12. RIVASTIGMINE [Concomitant]
     Active Substance: RIVASTIGMINE
  13. GABAPENTIN [Concomitant]
     Active Substance: GABAPENTIN
  14. ESOMEPRAZOLE [Concomitant]
     Active Substance: ESOMEPRAZOLE
  15. DULOXETINE [Concomitant]
     Active Substance: DULOXETINE
  16. MELATONIN [Concomitant]
     Active Substance: MELATONIN
  17. CALCIUM [Concomitant]
     Active Substance: CALCIUM
  18. FEXOFENADINE [Concomitant]
     Active Substance: FEXOFENADINE HYDROCHLORIDE
  19. IRON [Concomitant]
     Active Substance: IRON
  20. NUVIGIL [Concomitant]
     Active Substance: ARMODAFINIL

REACTIONS (3)
  - Fall [Unknown]
  - Hallucination [Unknown]
  - Overdose [Not Recovered/Not Resolved]
